FAERS Safety Report 10186730 (Version 1)
Quarter: 2014Q2

REPORT INFORMATION
  Report Type: Spontaneous
  Country: DE (occurrence: DE)
  Receive Date: 20140521
  Receipt Date: 20140521
  Transmission Date: 20141212
  Serious: Yes (Life-Threatening, Hospitalization, Other)
  Sender: FDA-Public Use
  Company Number: PHHY2014DE058586

PATIENT
  Age: 71 Year
  Sex: Male

DRUGS (18)
  1. SANDIMMUN OPTORAL [Suspect]
     Dosage: 1 DF, BID
  2. MYCOPHENOLATE MOFETIL [Suspect]
     Dosage: 1 DF, 1 IN THE MORNING AND 2 AT NIGHT
  3. PROGRAF [Suspect]
     Indication: HEART TRANSPLANT
     Dosage: UNK
     Route: 042
     Dates: end: 20140224
  4. RINGER^S SOLUTION [Concomitant]
     Dosage: 60 ML/H
  5. PREDNISOLONE [Concomitant]
     Dosage: 1 DF, QD
  6. RAMIPRIL [Concomitant]
     Dosage: 1 DF, QD
  7. CANDESARTAN [Concomitant]
     Dosage: 1 DF, QD
  8. CALCIUM [Concomitant]
     Dosage: 1 DF, QD
  9. VITAMIN D3 [Concomitant]
     Dosage: 1 DF, QD
  10. LEVOTHYROXINE [Concomitant]
     Dosage: 1 DF, QD
  11. INSULIN [Concomitant]
     Dosage: 50 IU/50 ML, 1-3 ML/H
     Route: 042
  12. RESONIUM [Concomitant]
     Dosage: UNK
  13. TORASEMIDE [Concomitant]
     Dosage: UNK
  14. MAGNESIUM [Concomitant]
     Dosage: UNK
  15. ALLOPURINOL [Concomitant]
     Dosage: UNK
  16. PRAVASTATIN [Concomitant]
     Dosage: UNK
  17. LERCANIDIPINE [Concomitant]
     Dosage: UNK
  18. CLONIDINE [Concomitant]
     Dosage: UNK

REACTIONS (26)
  - Dehydration [Unknown]
  - Fall [Unknown]
  - Wound [Unknown]
  - Metabolic acidosis [Unknown]
  - Renal failure chronic [Unknown]
  - Sepsis [Unknown]
  - Body temperature increased [Unknown]
  - Tremor [Unknown]
  - Chills [Unknown]
  - Tachycardia [Unknown]
  - Tachypnoea [Unknown]
  - Somnolence [Unknown]
  - Slow response to stimuli [Unknown]
  - Systemic inflammatory response syndrome [Unknown]
  - Abdominal pain [Unknown]
  - Haematoma [Unknown]
  - Cerebral infarction [Unknown]
  - Ventricular dysfunction [Unknown]
  - Ejection fraction decreased [Unknown]
  - Enteritis [Unknown]
  - Congestive cardiomyopathy [Unknown]
  - Type 2 diabetes mellitus [Unknown]
  - Diabetic neuropathy [Unknown]
  - Peripheral arterial occlusive disease [Unknown]
  - Hyperlipidaemia [Unknown]
  - Hypertension [Unknown]
